FAERS Safety Report 23665136 (Version 1)
Quarter: 2024Q1

REPORT INFORMATION
  Report Type: Spontaneous
  Country: PE (occurrence: PE)
  Receive Date: 20240322
  Receipt Date: 20240322
  Transmission Date: 20240410
  Serious: Yes (Hospitalization, Other)
  Sender: FDA-Public Use
  Company Number: PE-002147023-NVSC2024PE060856

PATIENT
  Age: 92 Year
  Sex: Female

DRUGS (16)
  1. ELTROMBOPAG OLAMINE [Suspect]
     Active Substance: ELTROMBOPAG OLAMINE
     Indication: Thrombocytopenia
     Dosage: UNK
     Route: 065
     Dates: start: 20230323
  2. ELTROMBOPAG OLAMINE [Suspect]
     Active Substance: ELTROMBOPAG OLAMINE
     Dosage: 50 MG (ONE TABLET AT 3 PM DAILY)
     Route: 065
  3. ELTROMBOPAG OLAMINE [Suspect]
     Active Substance: ELTROMBOPAG OLAMINE
     Dosage: 50 MG ( 1 AND ? AT 3 PM DAILY (75 MG))
     Route: 065
  4. ELTROMBOPAG OLAMINE [Suspect]
     Active Substance: ELTROMBOPAG OLAMINE
     Dosage: 50 MG (1 TABLET AT 3 PM (50 MG))
     Route: 065
  5. ELTROMBOPAG OLAMINE [Suspect]
     Active Substance: ELTROMBOPAG OLAMINE
     Dosage: 50 MG (G 1 AND ? TABLET IN THE AFTERNOON;)
     Route: 065
     Dates: start: 20230507, end: 20230518
  6. ELTROMBOPAG OLAMINE [Suspect]
     Active Substance: ELTROMBOPAG OLAMINE
     Dosage: 50 MG (1 TABLET EVERY DAY)
     Route: 065
     Dates: start: 20230602
  7. ELTROMBOPAG OLAMINE [Suspect]
     Active Substance: ELTROMBOPAG OLAMINE
     Dosage: 50 MG (1 TABLET EVERY DAY (EXCEPT SUNDAY); SINCE 15- JUN-2023)
     Route: 065
  8. ELTROMBOPAG OLAMINE [Suspect]
     Active Substance: ELTROMBOPAG OLAMINE
     Dosage: 50 MG (AT 3 PM (EXCEPT WEDNESDAY AND SUNDAY);)
     Route: 065
  9. DEXAMETHASONE [Concomitant]
     Active Substance: DEXAMETHASONE
     Indication: Thrombocytopenia
     Dosage: UNK
     Route: 065
     Dates: end: 20240116
  10. DEXAMETHASONE [Concomitant]
     Active Substance: DEXAMETHASONE
     Dosage: 4 MG (5 TABLETS AT 8 AM AND 5 TABLETS AT 3 PM (40 MG DAILY); FOR 4 DAYS, MARCH 8TH, 9TH, 10TH AND 11
     Route: 065
  11. DEXAMETHASONE [Concomitant]
     Active Substance: DEXAMETHASONE
     Dosage: 4 MG (2 TABLETS AT 8 AM AND 2 TABLETS AT 8 PM (16 MG DAILY); MARCH 12TH, 13TH)
     Route: 065
  12. DEXAMETHASONE [Concomitant]
     Active Substance: DEXAMETHASONE
     Dosage: 4 MG (2 TABLETS AT 8 AM (8 MG DAILY))
     Route: 065
     Dates: start: 20240314
  13. DEXAMETHASONE [Concomitant]
     Active Substance: DEXAMETHASONE
     Dosage: 4 MG ( 1 TABLET AT 8 AM AND 1 TABLET AT 3 PM (8 MG DAILY); FROM MARCH 15TH TO MARCH 22ND)
     Route: 065
  14. DEXAMETHASONE [Concomitant]
     Active Substance: DEXAMETHASONE
     Dosage: 1 MG (1 TABLET AT 8 AM ON MONDAY, WEDNESDAY, FRIDAY AND SATURDAY,)
     Route: 065
  15. DEXAMETHASONE [Concomitant]
     Active Substance: DEXAMETHASONE
     Dosage: 1 MG (? TABLET AT 8 AM MONDAY AND FRIDAY,)
     Route: 065
  16. DEXAMETHASONE [Concomitant]
     Active Substance: DEXAMETHASONE
     Dosage: UNK
     Route: 065
     Dates: end: 20240116

REACTIONS (28)
  - COVID-19 [Unknown]
  - Pyrexia [Unknown]
  - Platelet count decreased [Unknown]
  - Epidermal necrosis [Unknown]
  - Epidermolysis bullosa [Unknown]
  - Platelet count abnormal [Unknown]
  - Blood glucose decreased [Unknown]
  - Blood urea abnormal [Unknown]
  - C-reactive protein increased [Unknown]
  - Blood bilirubin abnormal [Unknown]
  - White blood cell count increased [Unknown]
  - Red blood cell sedimentation rate increased [Unknown]
  - Serum ferritin increased [Unknown]
  - Transferrin saturation decreased [Unknown]
  - Transferrin saturation increased [Unknown]
  - Oedema peripheral [Unknown]
  - Hypotension [Unknown]
  - Urinary tract infection bacterial [Unknown]
  - Proteus test positive [Unknown]
  - Arthralgia [Unknown]
  - Urinary tract discomfort [Unknown]
  - Nodule [Unknown]
  - Hypersensitivity [Unknown]
  - Dermatitis atopic [Unknown]
  - Dermatitis contact [Unknown]
  - Parakeratosis [Unknown]
  - Superficial inflammatory dermatosis [Unknown]
  - Cellulitis [Unknown]

NARRATIVE: CASE EVENT DATE: 20230328
